FAERS Safety Report 24795202 (Version 2)
Quarter: 2025Q3

REPORT INFORMATION
  Report Type: Spontaneous
  Country: CA (occurrence: CA)
  Receive Date: 20241231
  Receipt Date: 20250803
  Transmission Date: 20251021
  Serious: Yes (Other)
  Sender: ALEXION PHARMACEUTICALS
  Company Number: CA-HALEON-2218221

PATIENT
  Age: 41 Year
  Sex: Female

DRUGS (159)
  1. NEXIUM [Suspect]
     Active Substance: ESOMEPRAZOLE MAGNESIUM
     Indication: Migraine
     Route: 065
  2. LANSOPRAZOLE [Suspect]
     Active Substance: LANSOPRAZOLE
     Route: 065
  3. LISINOPRIL [Suspect]
     Active Substance: LISINOPRIL
     Dosage: THERAPY DURATION 152 DAYS
  4. LISINOPRIL [Suspect]
     Active Substance: LISINOPRIL
     Route: 065
  5. LISINOPRIL [Suspect]
     Active Substance: LISINOPRIL
     Dosage: THERAPY DURATION 54 DAYS
  6. METRONIDAZOLE [Suspect]
     Active Substance: METRONIDAZOLE
     Route: 065
  7. LISINOPRIL [Suspect]
     Active Substance: LISINOPRIL
     Route: 065
  8. MACROBID [Concomitant]
     Active Substance: NITROFURANTOIN\NITROFURANTOIN MONOHYDRATE
     Indication: Product used for unknown indication
     Route: 065
  9. MOMETASONE FUROATE [Concomitant]
     Active Substance: MOMETASONE FUROATE
     Indication: Migraine
     Route: 065
  10. MOMETASONE FUROATE [Concomitant]
     Active Substance: MOMETASONE FUROATE
     Dosage: THERAPY DURATION 144 DAYS
     Route: 065
  11. MOMETASONE FUROATE [Concomitant]
     Active Substance: MOMETASONE FUROATE
     Dosage: THERAPY DURATION 147 DAYS
     Route: 065
  12. MOMETASONE FUROATE [Concomitant]
     Active Substance: MOMETASONE FUROATE
     Indication: Product used for unknown indication
     Route: 065
  13. POLYETHYLENE GLYCOL 3350 [Concomitant]
     Active Substance: POLYETHYLENE GLYCOL 3350
     Indication: Product used for unknown indication
     Route: 065
  14. METOCLOPRAMIDE [Concomitant]
     Active Substance: METOCLOPRAMIDE
     Route: 065
  15. METOCLOPRAMIDE [Concomitant]
     Active Substance: METOCLOPRAMIDE
     Route: 065
  16. METOCLOPRAMIDE [Concomitant]
     Active Substance: METOCLOPRAMIDE
     Indication: Product used for unknown indication
     Route: 065
  17. MORPHINE SULFATE [Concomitant]
     Active Substance: MORPHINE SULFATE
     Indication: Product used for unknown indication
     Route: 065
  18. NAPROXEN [Concomitant]
     Active Substance: NAPROXEN
     Indication: Product used for unknown indication
     Route: 065
  19. OSELTAMIVIR [Concomitant]
     Active Substance: OSELTAMIVIR
     Indication: Product used for unknown indication
     Route: 065
  20. PANTOPRAZOLE [Concomitant]
     Active Substance: PANTOPRAZOLE
     Indication: Product used for unknown indication
     Route: 065
  21. PREDNISONE [Suspect]
     Active Substance: PREDNISONE
     Indication: Product used for unknown indication
     Dosage: THERAPY DURATION 1 DAYS
     Route: 065
  22. PREDNISONE [Suspect]
     Active Substance: PREDNISONE
     Route: 065
  23. PROPRANOLOL HYDROCHLORIDE [Concomitant]
     Active Substance: PROPRANOLOL HYDROCHLORIDE
     Route: 065
  24. PROPRANOLOL HYDROCHLORIDE [Concomitant]
     Active Substance: PROPRANOLOL HYDROCHLORIDE
     Route: 065
  25. PROPRANOLOL HYDROCHLORIDE [Concomitant]
     Active Substance: PROPRANOLOL HYDROCHLORIDE
     Route: 065
  26. RABEPRAZOLE [Concomitant]
     Active Substance: RABEPRAZOLE
     Indication: Migraine
     Dosage: THERAPY DURATION 6 DAYS
     Route: 065
  27. RABEPRAZOLE [Concomitant]
     Active Substance: RABEPRAZOLE
     Dosage: THERAPY DURATION 54 DAYS
     Route: 065
  28. RABEPRAZOLE [Concomitant]
     Active Substance: RABEPRAZOLE
     Route: 065
  29. RABEPRAZOLE [Concomitant]
     Active Substance: RABEPRAZOLE
     Dosage: THERAPY DURATION 144 DAYS
     Route: 065
  30. RABEPRAZOLE [Concomitant]
     Active Substance: RABEPRAZOLE
     Route: 065
  31. RABEPRAZOLE [Concomitant]
     Active Substance: RABEPRAZOLE
     Route: 065
  32. RABEPRAZOLE [Concomitant]
     Active Substance: RABEPRAZOLE
     Dosage: THERAPY DURATION 147 HOURS
     Route: 065
  33. RABEPRAZOLE [Concomitant]
     Active Substance: RABEPRAZOLE
     Dosage: THERAPY DURATION 23 DAYS
     Route: 065
  34. RABEPRAZOLE [Concomitant]
     Active Substance: RABEPRAZOLE
     Dosage: THERAPY DURATION 394 DAYS
     Route: 065
  35. RABEPRAZOLE [Concomitant]
     Active Substance: RABEPRAZOLE
     Dosage: THERAPY DURATION 77 DAYS
     Route: 065
  36. RABEPRAZOLE [Concomitant]
     Active Substance: RABEPRAZOLE
     Dosage: THERAPY DURATION 28 DAYS
     Route: 065
  37. RABEPRAZOLE [Concomitant]
     Active Substance: RABEPRAZOLE
     Dosage: THERAPY DURATION 67 DAYS
     Route: 065
  38. RABEPRAZOLE [Concomitant]
     Active Substance: RABEPRAZOLE
     Dosage: THERAPY DURATION 1 DAYS
     Route: 065
  39. RABEPRAZOLE [Concomitant]
     Active Substance: RABEPRAZOLE
     Dosage: THERAPY DURATION 62 DAYS
     Route: 065
  40. RABEPRAZOLE [Concomitant]
     Active Substance: RABEPRAZOLE
     Dosage: THERAPY DURATION 21 DAYS
     Route: 065
  41. RABEPRAZOLE [Concomitant]
     Active Substance: RABEPRAZOLE
     Dosage: THERAPY DURATION 140 DAYS
     Route: 065
  42. RABEPRAZOLE [Concomitant]
     Active Substance: RABEPRAZOLE
     Dosage: THERAPY DURATION 143 DAYS
     Route: 065
  43. RABEPRAZOLE [Concomitant]
     Active Substance: RABEPRAZOLE
     Dosage: THERAPY DURATION 137 DAYS
     Route: 065
  44. RABEPRAZOLE [Concomitant]
     Active Substance: RABEPRAZOLE
     Dosage: THERAPY DURATION 159 DAYS
     Route: 065
  45. RABEPRAZOLE [Concomitant]
     Active Substance: RABEPRAZOLE
     Dosage: THERAPY DURATION 143 DAYS
     Route: 065
  46. RIZATRIPTAN [Concomitant]
     Active Substance: RIZATRIPTAN
     Indication: Migraine
     Route: 065
  47. RIZATRIPTAN [Concomitant]
     Active Substance: RIZATRIPTAN
     Dosage: THERAPY DURATION 1 DAYS
     Route: 065
  48. RIZATRIPTAN [Concomitant]
     Active Substance: RIZATRIPTAN
     Route: 065
  49. ALBUTEROL [Concomitant]
     Active Substance: ALBUTEROL
     Indication: Product used for unknown indication
     Route: 065
  50. ALBUTEROL [Concomitant]
     Active Substance: ALBUTEROL
     Route: 065
  51. SERTRALINE [Suspect]
     Active Substance: SERTRALINE HYDROCHLORIDE
     Route: 065
  52. SERTRALINE [Suspect]
     Active Substance: SERTRALINE HYDROCHLORIDE
     Route: 065
  53. SULFATRIM [Concomitant]
     Active Substance: SULFAMETHOXAZOLE\TRIMETHOPRIM
     Indication: Product used for unknown indication
     Route: 065
  54. SUMATRIPTAN [Suspect]
     Active Substance: SUMATRIPTAN
     Indication: Migraine
     Route: 065
  55. SUMATRIPTAN [Suspect]
     Active Substance: SUMATRIPTAN
     Route: 065
  56. TOPIRAMATE [Suspect]
     Active Substance: TOPIRAMATE
     Route: 065
  57. TOPIRAMATE [Suspect]
     Active Substance: TOPIRAMATE
     Route: 065
  58. TRAMADOL HYDROCHLORIDE [Suspect]
     Active Substance: TRAMADOL HYDROCHLORIDE
     Indication: Product used for unknown indication
     Route: 065
  59. TRAMADOL HYDROCHLORIDE [Suspect]
     Active Substance: TRAMADOL HYDROCHLORIDE
     Route: 065
  60. SULFAMETHOXAZOLE\TRIMETHOPRIM [Suspect]
     Active Substance: SULFAMETHOXAZOLE\TRIMETHOPRIM
     Route: 065
  61. VENLAFAXINE HYDROCHLORIDE [Suspect]
     Active Substance: VENLAFAXINE HYDROCHLORIDE
     Indication: Product used for unknown indication
     Route: 065
  62. VENLAFAXINE HYDROCHLORIDE [Suspect]
     Active Substance: VENLAFAXINE HYDROCHLORIDE
     Route: 065
  63. ZOLMITRIPTAN [Suspect]
     Active Substance: ZOLMITRIPTAN
     Route: 065
  64. ACETAMINOPHEN [Suspect]
     Active Substance: ACETAMINOPHEN
     Route: 065
  65. ACETAMINOPHEN [Concomitant]
     Active Substance: ACETAMINOPHEN
     Indication: Product used for unknown indication
     Route: 065
  66. AMOXICILLIN [Suspect]
     Active Substance: AMOXICILLIN
     Route: 065
  67. AMOXICILLIN [Suspect]
     Active Substance: AMOXICILLIN
     Route: 065
  68. AMOXICILLIN [Suspect]
     Active Substance: AMOXICILLIN
     Route: 065
  69. AZITHROMYCIN [Suspect]
     Active Substance: AZITHROMYCIN
     Route: 065
  70. AZITHROMYCIN [Suspect]
     Active Substance: AZITHROMYCIN
     Route: 065
  71. AZITHROMYCIN [Concomitant]
     Active Substance: AZITHROMYCIN
     Indication: Product used for unknown indication
     Route: 065
  72. BOTULINUM TOXIN TYPE A [Suspect]
     Active Substance: BOTULINUM TOXIN TYPE A
     Indication: Product used for unknown indication
     Route: 065
  73. BOTULINUM TOXIN TYPE A [Suspect]
     Active Substance: BOTULINUM TOXIN TYPE A
     Route: 065
  74. BOTULINUM TOXIN TYPE A [Suspect]
     Active Substance: BOTULINUM TOXIN TYPE A
     Route: 065
  75. BOTULINUM TOXIN TYPE A [Suspect]
     Active Substance: BOTULINUM TOXIN TYPE A
     Route: 065
  76. BOTULINUM TOXIN TYPE A [Suspect]
     Active Substance: BOTULINUM TOXIN TYPE A
     Route: 065
  77. BOTULINUM TOXIN TYPE A [Suspect]
     Active Substance: BOTULINUM TOXIN TYPE A
     Route: 065
  78. CEFUROXIME [Concomitant]
     Active Substance: CEFUROXIME
     Indication: Product used for unknown indication
     Route: 065
  79. CEPHALEXIN [Concomitant]
     Active Substance: CEPHALEXIN
     Indication: Product used for unknown indication
     Route: 065
  80. CIPROFLOXACIN [Suspect]
     Active Substance: CIPROFLOXACIN
     Route: 065
  81. CIPROFLOXACIN [Suspect]
     Active Substance: CIPROFLOXACIN
     Route: 065
  82. CIPROFLOXACIN [Suspect]
     Active Substance: CIPROFLOXACIN
     Route: 065
  83. CIPROFLOXACIN [Suspect]
     Active Substance: CIPROFLOXACIN
  84. CLARITHROMYCIN [Suspect]
     Active Substance: CLARITHROMYCIN
     Route: 065
  85. CLARITHROMYCIN [Suspect]
     Active Substance: CLARITHROMYCIN
     Route: 065
  86. CLARITHROMYCIN [Suspect]
     Active Substance: CLARITHROMYCIN
     Dosage: THERAPY DURATION 1 DAYS
     Route: 065
  87. CODEINE [Suspect]
     Active Substance: CODEINE
     Indication: Migraine
     Route: 065
  88. CODEINE [Suspect]
     Active Substance: CODEINE
     Route: 065
  89. DANAZOL [Concomitant]
     Active Substance: DANAZOL
     Indication: Product used for unknown indication
     Route: 065
  90. CYMBALTA [Concomitant]
     Active Substance: DULOXETINE HYDROCHLORIDE
     Indication: Product used for unknown indication
     Route: 065
  91. DEXAMETHASONE [Suspect]
     Active Substance: DEXAMETHASONE
     Indication: Migraine
     Route: 065
  92. DEXAMETHASONE [Suspect]
     Active Substance: DEXAMETHASONE
     Route: 065
  93. DULOXETINE HYDROCHLORIDE [Suspect]
     Active Substance: DULOXETINE HYDROCHLORIDE
     Indication: Migraine
     Route: 065
  94. DULOXETINE HYDROCHLORIDE [Suspect]
     Active Substance: DULOXETINE HYDROCHLORIDE
     Route: 065
  95. ESCITALOPRAM [Suspect]
     Active Substance: ESCITALOPRAM OXALATE
     Indication: Migraine
     Route: 065
  96. FERROUS FUMARATE [Concomitant]
     Active Substance: FERROUS FUMARATE
     Indication: Product used for unknown indication
     Route: 065
  97. FLUCONAZOLE [Suspect]
     Active Substance: FLUCONAZOLE
     Route: 065
  98. FLUOXETINE [Concomitant]
     Active Substance: FLUOXETINE HYDROCHLORIDE
     Indication: Product used for unknown indication
     Route: 065
  99. FLUTICASONE [Concomitant]
     Active Substance: FLUTICASONE
     Indication: Product used for unknown indication
     Route: 065
  100. FROVATRIPTAN [Concomitant]
     Active Substance: FROVATRIPTAN
     Indication: Product used for unknown indication
     Route: 065
  101. HYDROMORPHONE [Suspect]
     Active Substance: HYDROMORPHONE
     Indication: Migraine
     Dosage: THERAPY DURATION 1 DAYS
     Route: 065
  102. HYDROMORPHONE [Suspect]
     Active Substance: HYDROMORPHONE
     Dosage: THERAPY DURATION 72 DAYS
     Route: 065
  103. HYDROMORPHONE [Suspect]
     Active Substance: HYDROMORPHONE
     Dosage: THERAPY DURATION 4 DAYS
     Route: 065
  104. HYDROMORPHONE [Suspect]
     Active Substance: HYDROMORPHONE
     Dosage: THERAPY DURATION 82 DAYS
     Route: 065
  105. HYDROMORPHONE [Suspect]
     Active Substance: HYDROMORPHONE
     Dosage: THERAPY DURATION 55 DAYS
     Route: 065
  106. HYDROMORPHONE [Suspect]
     Active Substance: HYDROMORPHONE
     Dosage: THERAPY DURATION 140 DAYS
     Route: 065
  107. HYDROMORPHONE [Suspect]
     Active Substance: HYDROMORPHONE
     Dosage: THERAPY DURATION 61 DAYS
     Route: 065
  108. HYDROMORPHONE [Suspect]
     Active Substance: HYDROMORPHONE
     Dosage: THERAPY DURATION 139 DAYS
     Route: 065
  109. HYDROMORPHONE [Suspect]
     Active Substance: HYDROMORPHONE
     Dosage: THERAPY DURATION 136 DAYS
     Route: 065
  110. HYDROMORPHONE [Suspect]
     Active Substance: HYDROMORPHONE
     Dosage: THERAPY DURATION 158 DAYS
     Route: 065
  111. HYDROMORPHONE [Suspect]
     Active Substance: HYDROMORPHONE
     Route: 065
  112. SCOPOLAMINE [Suspect]
     Active Substance: SCOPOLAMINE
     Indication: Migraine
     Route: 065
  113. INDOMETHACIN [Suspect]
     Active Substance: INDOMETHACIN
  114. INDOMETHACIN [Suspect]
     Active Substance: INDOMETHACIN
  115. INDOMETHACIN [Suspect]
     Active Substance: INDOMETHACIN
     Dosage: THERAPY DURATION 47 DAYS
  116. INDOMETHACIN [Suspect]
     Active Substance: INDOMETHACIN
  117. INDOMETHACIN [Suspect]
     Active Substance: INDOMETHACIN
  118. INDOMETHACIN [Suspect]
     Active Substance: INDOMETHACIN
     Dosage: THERAPY DURATION 45 DAYS
  119. INDOMETHACIN [Suspect]
     Active Substance: INDOMETHACIN
     Dosage: THERAPY DURATION 1 DAYS
  120. INDOMETHACIN [Suspect]
     Active Substance: INDOMETHACIN
     Dosage: THERAPY DURATION 52 DAYS
  121. INDOMETHACIN [Suspect]
     Active Substance: INDOMETHACIN
     Dosage: THERAPY DURATION 63 DAYS
  122. INDOMETHACIN [Suspect]
     Active Substance: INDOMETHACIN
     Dosage: THERAPY DURATION 177 DAYS
  123. INDOMETHACIN [Suspect]
     Active Substance: INDOMETHACIN
     Dosage: THERAPY DURATION 32 DAYS
  124. INDOMETHACIN [Suspect]
     Active Substance: INDOMETHACIN
     Dosage: THERAPY DURATION 62 DAYS
  125. INDOMETHACIN [Suspect]
     Active Substance: INDOMETHACIN
     Dosage: THERAPY DURATION 57 DAYS
  126. INDOMETHACIN [Suspect]
     Active Substance: INDOMETHACIN
  127. INDOMETHACIN [Suspect]
     Active Substance: INDOMETHACIN
  128. INDOMETHACIN [Suspect]
     Active Substance: INDOMETHACIN
     Dosage: THERAPY DURATION 143.0 DAYS
  129. INDOMETHACIN [Suspect]
     Active Substance: INDOMETHACIN
  130. INDOMETHACIN [Suspect]
     Active Substance: INDOMETHACIN
  131. INDOMETHACIN [Suspect]
     Active Substance: INDOMETHACIN
  132. INDOMETHACIN [Suspect]
     Active Substance: INDOMETHACIN
  133. INDOMETHACIN [Suspect]
     Active Substance: INDOMETHACIN
  134. INDOMETHACIN [Suspect]
     Active Substance: INDOMETHACIN
     Route: 065
  135. INDOMETHACIN [Suspect]
     Active Substance: INDOMETHACIN
  136. INDOMETHACIN [Suspect]
     Active Substance: INDOMETHACIN
  137. ZOPICLONE [Suspect]
     Active Substance: ZOPICLONE
     Indication: Migraine
     Dosage: THERAPY DURATION 55 DAYS
     Route: 065
  138. ZOPICLONE [Suspect]
     Active Substance: ZOPICLONE
     Dosage: THERAPY DURATION 37 DAYS
     Route: 065
  139. ZOPICLONE [Suspect]
     Active Substance: ZOPICLONE
     Dosage: THERAPY DURATION 52 DAYS
     Route: 065
  140. ZOPICLONE [Suspect]
     Active Substance: ZOPICLONE
     Dosage: THERAPY DURATION 67 DAYS
     Route: 065
  141. ZOPICLONE [Suspect]
     Active Substance: ZOPICLONE
     Dosage: THERAPY DURATION 1 DAYS
     Route: 065
  142. ZOPICLONE [Suspect]
     Active Substance: ZOPICLONE
     Dosage: THERAPY DURATION 62 DAYS
     Route: 065
  143. ZOPICLONE [Suspect]
     Active Substance: ZOPICLONE
     Dosage: THERAPY DURATION 58 DAYS
     Route: 065
  144. ZOPICLONE [Suspect]
     Active Substance: ZOPICLONE
     Dosage: THERAPY DURATION 47 DAYS
     Route: 065
  145. ZOPICLONE [Suspect]
     Active Substance: ZOPICLONE
     Dosage: THERAPY DURATION 59 DAYS
     Route: 065
  146. ZOPICLONE [Suspect]
     Active Substance: ZOPICLONE
     Dosage: THERAPY DURATION 61 DAYS
     Route: 065
  147. ZOPICLONE [Suspect]
     Active Substance: ZOPICLONE
     Dosage: THERAPY DURATION  73 DAYS
     Route: 065
  148. ZOPICLONE [Suspect]
     Active Substance: ZOPICLONE
     Dosage: THERAPY DURATION 94 DAYS
     Route: 065
  149. ZOPICLONE [Suspect]
     Active Substance: ZOPICLONE
     Dosage: THERAPY DURATION 59 DAYS
     Route: 065
  150. ZOPICLONE [Suspect]
     Active Substance: ZOPICLONE
     Dosage: THERAPY DURATION 56 DAYS
     Route: 065
  151. ZOPICLONE [Suspect]
     Active Substance: ZOPICLONE
     Dosage: THERAPY DURATION 1 DAYS
     Route: 065
  152. ZOPICLONE [Suspect]
     Active Substance: ZOPICLONE
     Route: 065
  153. ZOPICLONE [Suspect]
     Active Substance: ZOPICLONE
     Dosage: THERAPY DURATION 141 DAYS
     Route: 065
  154. ZOPICLONE [Suspect]
     Active Substance: ZOPICLONE
     Dosage: THERAPY DURATION 62 DAYS
     Route: 065
  155. ZOPICLONE [Suspect]
     Active Substance: ZOPICLONE
     Dosage: THERAPY DURATION 83 DAYS
     Route: 065
  156. ZOPICLONE [Suspect]
     Active Substance: ZOPICLONE
     Route: 065
  157. ZOPICLONE [Suspect]
     Active Substance: ZOPICLONE
     Dosage: THERAPY DURATION 56 DAYS
     Route: 065
  158. ZOPICLONE [Suspect]
     Active Substance: ZOPICLONE
     Dosage: THERAPY DURATION 53 DAYS
     Route: 065
  159. ZOPICLONE [Suspect]
     Active Substance: ZOPICLONE
     Dosage: THERAPY DURATION 45 DAYS
     Route: 065

REACTIONS (9)
  - Angioedema [Unknown]
  - Drug intolerance [Unknown]
  - Hypersensitivity [Unknown]
  - Swelling face [Unknown]
  - Dysphonia [Unknown]
  - Off label use [Unknown]
  - Swollen tongue [Unknown]
  - Headache [Unknown]
  - Drug ineffective for unapproved indication [Unknown]
